FAERS Safety Report 24218003 (Version 2)
Quarter: 2024Q3

REPORT INFORMATION
  Report Type: Report from Study
  Country: DE (occurrence: DE)
  Receive Date: 20240816
  Receipt Date: 20240913
  Transmission Date: 20241017
  Serious: Yes (Life-Threatening)
  Sender: PFIZER
  Company Number: DE-PFIZER INC-PV202400106418

PATIENT
  Age: 73 Year
  Sex: Female

DRUGS (4)
  1. UNSPECIFIED INGREDIENT [Suspect]
     Active Substance: UNSPECIFIED INGREDIENT
     Dosage: UNK
  2. XELJANZ [Suspect]
     Active Substance: TOFACITINIB CITRATE
     Indication: Psoriatic arthropathy
     Dosage: 10 MG, DAILY
     Dates: start: 20190513, end: 20231218
  3. IBUPROFEN [Concomitant]
     Active Substance: IBUPROFEN
     Dosage: 600 MG, 4 DAYS PER WEEK
     Dates: start: 20170101
  4. IBUPROFEN [Concomitant]
     Active Substance: IBUPROFEN
     Dosage: 400 MG, 7 DAYS PER WEEK
     Dates: start: 20231218

REACTIONS (1)
  - Lung neoplasm malignant [Not Recovered/Not Resolved]

NARRATIVE: CASE EVENT DATE: 20231218
